FAERS Safety Report 16473998 (Version 2)
Quarter: 2019Q2

REPORT INFORMATION
  Report Type: Spontaneous
  Country: US (occurrence: US)
  Receive Date: 20190625
  Receipt Date: 20190627
  Transmission Date: 20190711
  Serious: Yes (Other)
  Sender: FDA-Public Use
  Company Number: US-PFIZER INC-2019267384

PATIENT
  Age: 51 Year
  Sex: Male

DRUGS (4)
  1. VFEND [Suspect]
     Active Substance: VORICONAZOLE
     Dosage: 150 MG, 2X/DAY (MAINTAINED)
     Route: 048
     Dates: end: 20160725
  2. VFEND [Suspect]
     Active Substance: VORICONAZOLE
     Indication: BRONCHOPULMONARY ASPERGILLOSIS
     Dosage: UNK (WITH DOSE ADJUSTMENT OF THE DRUG)
     Route: 048
  3. VFEND [Suspect]
     Active Substance: VORICONAZOLE
     Dosage: 175 MG, DAILY (RESTARTED AT A REDUCED DOSE)
     Route: 048
     Dates: start: 20160801, end: 20170312
  4. VFEND [Suspect]
     Active Substance: VORICONAZOLE
     Dosage: 400 MG, 2X/DAY
     Route: 048
     Dates: start: 20160715

REACTIONS (3)
  - Drug-induced liver injury [Recovering/Resolving]
  - Hepatic encephalopathy [Recovering/Resolving]
  - Drug level above therapeutic [Unknown]

NARRATIVE: CASE EVENT DATE: 2016
